FAERS Safety Report 4955322-2 (Version None)
Quarter: 2006Q1

REPORT INFORMATION
  Report Type: 
  Country: None (occurrence: None)
  Receive Date: 20060322
  Receipt Date: 20060310
  Transmission Date: 20060701
  Serious: Yes (Death)
  Sender: FDA-Public Use
  Company Number: 2005172597

PATIENT
  Age: 49 Year
  Sex: Female
  Weight: 86.1834 kg

DRUGS (4)
  1. NEURONTIN [Suspect]
     Indication: NEUROPATHY PERIPHERAL
     Dates: start: 20021001
  2. NEURONTIN [Suspect]
     Indication: RESTLESS LEGS SYNDROME
     Dates: start: 20021001
  3. PERCOCET [Suspect]
     Indication: ILL-DEFINED DISORDER
  4. AMBIEN [Suspect]
     Indication: ILL-DEFINED DISORDER
     Dates: start: 19991001

REACTIONS (14)
  - ANGIOPATHY [None]
  - BACTERIAL INFECTION [None]
  - CELL DEATH [None]
  - COMPLETED SUICIDE [None]
  - DEPRESSION [None]
  - DRUG INEFFECTIVE [None]
  - DRUG TOXICITY [None]
  - EXOSTOSIS [None]
  - FIBROSIS [None]
  - HEPATIC CONGESTION [None]
  - PANCREATIC DISORDER [None]
  - PLANTAR FASCIITIS [None]
  - PULMONARY CONGESTION [None]
  - RENAL DISORDER [None]
